FAERS Safety Report 21794714 (Version 2)
Quarter: 2023Q1

REPORT INFORMATION
  Report Type: Spontaneous
  Country: CA (occurrence: CA)
  Receive Date: 20221229
  Receipt Date: 20230112
  Transmission Date: 20230418
  Serious: Yes (Hospitalization)
  Sender: FDA-Public Use
  Company Number: CA-BAYER-2022A171965

PATIENT
  Age: 33 Year
  Sex: Male

DRUGS (1)
  1. CIPRO [Suspect]
     Active Substance: CIPROFLOXACIN HYDROCHLORIDE
     Indication: Prostatitis
     Dosage: UNK
     Route: 048
     Dates: start: 20221024, end: 20221104

REACTIONS (9)
  - Palpitations [Not Recovered/Not Resolved]
  - Panic attack [Not Recovered/Not Resolved]
  - Anxiety [Not Recovered/Not Resolved]
  - Dizziness [Not Recovered/Not Resolved]
  - Tinnitus [Not Recovered/Not Resolved]
  - Neck pain [Recovering/Resolving]
  - Arthralgia [Recovering/Resolving]
  - Vertigo [None]
  - Balance disorder [None]

NARRATIVE: CASE EVENT DATE: 20221025
